FAERS Safety Report 6492576-8 (Version None)
Quarter: 2009Q4

REPORT INFORMATION
  Report Type: 
  Country: None (occurrence: None)
  Receive Date: 20091214
  Receipt Date: 20091207
  Transmission Date: 20100525
  Serious: Yes (Hospitalization)
  Sender: FDA-Public Use
  Company Number: FR-BRISTOL-MYERS SQUIBB COMPANY-14884860

PATIENT
  Age: 79 Year
  Sex: Female

DRUGS (4)
  1. COUMADIN [Suspect]
     Indication: ATRIAL FIBRILLATION
     Dates: end: 20091001
  2. SEROPRAM [Concomitant]
  3. CARDENSIEL [Concomitant]
  4. RISPERDAL [Concomitant]

REACTIONS (3)
  - ANGIODERMATITIS [None]
  - INTERNATIONAL NORMALISED RATIO FLUCTUATION [None]
  - NECROSIS [None]
